FAERS Safety Report 15327119 (Version 2)
Quarter: 2018Q3

REPORT INFORMATION
  Report Type: Report from Study
  Country: FR (occurrence: FR)
  Receive Date: 20180828
  Receipt Date: 20180906
  Transmission Date: 20181010
  Serious: Yes (Hospitalization)
  Sender: FDA-Public Use
  Company Number: FR-ASTRAZENECA-2018SF07601

PATIENT
  Age: 20351 Day
  Sex: Female
  Weight: 64 kg

DRUGS (11)
  1. DURVALUMAB. [Suspect]
     Active Substance: DURVALUMAB
     Indication: OVARIAN CANCER
     Dosage: TOTAL DOSE: 4480 MG
     Route: 042
     Dates: start: 20180524, end: 20180803
  2. DURVALUMAB. [Suspect]
     Active Substance: DURVALUMAB
     Indication: OVARIAN CANCER
     Route: 042
     Dates: end: 20180830
  3. TRABECTEDIN [Suspect]
     Active Substance: TRABECTEDIN
     Indication: SOFT TISSUE SARCOMA
     Route: 042
     Dates: end: 20180830
  4. ZYPREXA [Concomitant]
     Active Substance: OLANZAPINE
     Route: 048
  5. TRABECTEDIN [Suspect]
     Active Substance: TRABECTEDIN
     Indication: SOFT TISSUE SARCOMA
     Route: 042
     Dates: start: 20180523, end: 20180802
  6. TAREG [Concomitant]
     Active Substance: VALSARTAN
     Route: 048
  7. DURVALUMAB. [Suspect]
     Active Substance: DURVALUMAB
     Indication: SOFT TISSUE SARCOMA
     Dosage: TOTAL DOSE: 4480 MG
     Route: 042
     Dates: start: 20180524, end: 20180803
  8. TRABECTEDIN [Suspect]
     Active Substance: TRABECTEDIN
     Indication: OVARIAN CANCER
     Route: 042
     Dates: start: 20180523, end: 20180802
  9. DURVALUMAB. [Suspect]
     Active Substance: DURVALUMAB
     Indication: SOFT TISSUE SARCOMA
     Route: 042
     Dates: end: 20180830
  10. TRABECTEDIN [Suspect]
     Active Substance: TRABECTEDIN
     Indication: OVARIAN CANCER
     Route: 042
     Dates: end: 20180830
  11. LEVOTHYROX [Concomitant]
     Active Substance: LEVOTHYROXINE
     Route: 048

REACTIONS (1)
  - Cardiac failure [Not Recovered/Not Resolved]

NARRATIVE: CASE EVENT DATE: 20180820
